FAERS Safety Report 11281760 (Version 5)
Quarter: 2017Q4

REPORT INFORMATION
  Report Type: Report from Study
  Country: US (occurrence: US)
  Receive Date: 20150717
  Receipt Date: 20171124
  Transmission Date: 20180320
  Serious: Yes (Life-Threatening, Hospitalization)
  Sender: FDA-Public Use
  Company Number: US-ACTELION-A-NJ2015-120825

PATIENT
  Age: 72 Year
  Sex: Female

DRUGS (1)
  1. TRACLEER [Suspect]
     Active Substance: BOSENTAN
     Indication: PULMONARY ARTERIAL HYPERTENSION
     Dosage: 125 MG, BID
     Route: 048
     Dates: start: 20110211

REACTIONS (8)
  - Sepsis [Recovering/Resolving]
  - Diarrhoea [Not Recovered/Not Resolved]
  - Sinusitis [Recovering/Resolving]
  - Movement disorder [Unknown]
  - Scleroderma [Not Recovered/Not Resolved]
  - Cystitis [Recovering/Resolving]
  - Renal disorder [Unknown]
  - Bacterial infection [Not Recovered/Not Resolved]

NARRATIVE: CASE EVENT DATE: 20150627
